FAERS Safety Report 10306104 (Version 1)
Quarter: 2014Q3

REPORT INFORMATION
  Report Type: Spontaneous
  Country: US (occurrence: None)
  Receive Date: 20140714
  Receipt Date: 20140714
  Transmission Date: 20150326
  Serious: Yes (Hospitalization)
  Sender: FDA-Public Use
  Company Number: None

PATIENT
  Age: 30 Year
  Sex: Female

DRUGS (1)
  1. TECFIDERA [Suspect]
     Active Substance: DIMETHYL FUMARATE
     Indication: MULTIPLE SCLEROSIS
     Dosage: 240 MG, TWICE A DAY, BY MOUTH
     Route: 048
     Dates: start: 20140626, end: 20140704

REACTIONS (2)
  - Pain [None]
  - Diarrhoea [None]

NARRATIVE: CASE EVENT DATE: 20140704
